FAERS Safety Report 5339660-X (Version None)
Quarter: 2007Q2

REPORT INFORMATION
  Report Type: 
  Country: None (occurrence: None)
  Receive Date: 20070404
  Receipt Date: 20060901
  Transmission Date: 20071010
  Serious: Yes (Other)
  Sender: FDA-Public Use
  Company Number: 2006100035

PATIENT
  Age: 24 Year
  Sex: Male
  Weight: 71.6683 kg

DRUGS (2)
  1. GEODON [Suspect]
     Indication: BIPOLAR DISORDER
     Dosage: 120 MG (60 MG, 2 IN 1 D),
     Dates: start: 20060811
  2. GEODON [Suspect]
     Indication: PSYCHOTIC DISORDER
     Dosage: 120 MG (60 MG, 2 IN 1 D),
     Dates: start: 20060811

REACTIONS (2)
  - DYSTONIA [None]
  - JOINT STIFFNESS [None]
